FAERS Safety Report 6416005-5 (Version None)
Quarter: 2009Q4

REPORT INFORMATION
  Report Type: 
  Country: None (occurrence: None)
  Receive Date: 20091027
  Receipt Date: 20091015
  Transmission Date: 20100525
  Serious: Yes (Other)
  Sender: FDA-Public Use
  Company Number: GB-CELGENEUS-167-20484-09061131

PATIENT
  Sex: Male

DRUGS (1)
  1. INNOHEP [Suspect]
     Route: 058
     Dates: start: 20090701

REACTIONS (1)
  - PSYCHIATRIC SYMPTOM [None]
